FAERS Safety Report 23223198 (Version 1)
Quarter: 2023Q4

REPORT INFORMATION
  Report Type: Spontaneous
  Country: FR (occurrence: FR)
  Receive Date: 20231123
  Receipt Date: 20231123
  Transmission Date: 20240110
  Serious: Yes (Hospitalization, Disabling, Other)
  Sender: FDA-Public Use
  Company Number: FR-SANOFI-01527252

PATIENT

DRUGS (2)
  1. HYDROXYCHLOROQUINE SULFATE [Suspect]
     Active Substance: HYDROXYCHLOROQUINE SULFATE
     Indication: Raynaud^s phenomenon
     Dosage: 200 MG, BID (2 TABLETS PER DAY)
     Route: 048
     Dates: start: 20010510, end: 20070403
  2. HYDROXYCHLOROQUINE SULFATE [Suspect]
     Active Substance: HYDROXYCHLOROQUINE SULFATE
     Indication: Peripheral vascular disorder

REACTIONS (9)
  - Maculopathy [Not Recovered/Not Resolved]
  - Blindness [Unknown]
  - Fall [Unknown]
  - Pain [Unknown]
  - Cyanosis [Unknown]
  - Depression [Unknown]
  - Weight decreased [Unknown]
  - Product use in unapproved indication [Unknown]
  - Incorrect dose administered [Unknown]

NARRATIVE: CASE EVENT DATE: 20010101
